FAERS Safety Report 16097372 (Version 1)
Quarter: 2019Q1

REPORT INFORMATION
  Report Type: Spontaneous
  Country: FR (occurrence: FR)
  Receive Date: 20190320
  Receipt Date: 20190320
  Transmission Date: 20190418
  Serious: Yes (Death)
  Sender: FDA-Public Use
  Company Number: PHHY2019FR061954

PATIENT
  Age: 87 Year
  Sex: Male
  Weight: 88 kg

DRUGS (5)
  1. AMOXICILLIN. [Suspect]
     Active Substance: AMOXICILLIN
     Indication: PRODUCT USED FOR UNKNOWN INDICATION
     Dosage: 1 G, UNK
     Route: 065
  2. BACTRIM [Concomitant]
     Active Substance: SULFAMETHOXAZOLE\TRIMETHOPRIM
     Indication: PRODUCT USED FOR UNKNOWN INDICATION
     Dosage: 1 DF, UNK
     Route: 065
  3. CALCIPARINE [Suspect]
     Active Substance: HEPARIN CALCIUM
     Indication: ATRIAL FIBRILLATION
     Dosage: 1.3 ML, UNK
     Route: 058
     Dates: start: 20181130
  4. VALACICLOVIR [Concomitant]
     Active Substance: VALACYCLOVIR HYDROCHLORIDE
     Indication: PRODUCT USED FOR UNKNOWN INDICATION
     Dosage: 500 MG, UNK
     Route: 065
  5. COUMADINE [Suspect]
     Active Substance: WARFARIN SODIUM
     Indication: ATRIAL FIBRILLATION
     Dosage: 2 MG, UNK
     Route: 048
     Dates: start: 20181226

REACTIONS (3)
  - Chest wall haematoma [Not Recovered/Not Resolved]
  - Traumatic haemothorax [Not Recovered/Not Resolved]
  - Extradural haematoma [Fatal]

NARRATIVE: CASE EVENT DATE: 20190131
